FAERS Safety Report 6904104-0 (Version None)
Quarter: 2010Q3

REPORT INFORMATION
  Report Type: 
  Country: None (occurrence: None)
  Receive Date: 20100804
  Receipt Date: 20090315
  Transmission Date: 20110219
  Serious: No
  Sender: FDA-Public Use
  Company Number: US-PFIZER INC-2009152008

PATIENT
  Sex: Female
  Weight: 68 kg

DRUGS (5)
  1. LYRICA [Suspect]
     Indication: FIBROMYALGIA
     Dosage: 75 MG, 2X/DAY
     Route: 048
     Dates: start: 20080101, end: 20090103
  2. METOPROLOL TARTRATE [Concomitant]
     Dosage: UNK
  3. ENALAPRIL MALEATE [Concomitant]
     Dosage: UNK
  4. LIPITOR [Concomitant]
     Dosage: UNK
  5. ASACOL [Concomitant]
     Dosage: UNK

REACTIONS (7)
  - DECREASED ACTIVITY [None]
  - DIARRHOEA [None]
  - FATIGUE [None]
  - HEADACHE [None]
  - INSOMNIA [None]
  - OEDEMA PERIPHERAL [None]
  - POLLAKIURIA [None]
